FAERS Safety Report 18344122 (Version 1)
Quarter: 2020Q4

REPORT INFORMATION
  Report Type: Spontaneous
  Country: US (occurrence: US)
  Receive Date: 20201002
  Receipt Date: 20201002
  Transmission Date: 20210114
  Serious: Yes (Hospitalization)
  Sender: FDA-Public Use
  Company Number: None

PATIENT
  Age: 76 Year
  Sex: Male
  Weight: 91 kg

DRUGS (3)
  1. LENALIDOMIDE (CC-5013) [Suspect]
     Active Substance: LENALIDOMIDE
     Dates: end: 20171206
  2. DEXAMETHASONE. [Suspect]
     Active Substance: DEXAMETHASONE
     Dates: end: 20170111
  3. VELCADE [Suspect]
     Active Substance: BORTEZOMIB
     Dates: end: 20170110

REACTIONS (2)
  - Intra-aortic balloon placement [None]
  - Coronary artery stenosis [None]

NARRATIVE: CASE EVENT DATE: 20180122
